FAERS Safety Report 7230439-0 (Version None)
Quarter: 2011Q1

REPORT INFORMATION
  Report Type: 
  Country: None (occurrence: None)
  Receive Date: 20110118
  Receipt Date: 20110112
  Transmission Date: 20110831
  Serious: Yes (Other)
  Sender: FDA-Public Use
  Company Number: JP-JNJFOC-20040605187

PATIENT
  Age: 68 Year
  Sex: Female

DRUGS (6)
  1. VALPROATE SODIUM [Concomitant]
     Route: 048
  2. FLECAINIDE ACETATE [Concomitant]
     Route: 048
  3. SULPYRINE [Suspect]
     Indication: PRODUCT USED FOR UNKNOWN INDICATION
     Route: 050
  4. CARVEDILOL [Concomitant]
     Route: 048
  5. UBENIMEX [Concomitant]
     Route: 048
  6. ITRIZOLE [Suspect]
     Indication: ILL-DEFINED DISORDER
     Route: 048

REACTIONS (2)
  - SHOCK [None]
  - TORSADE DE POINTES [None]
